FAERS Safety Report 21009887 (Version 1)
Quarter: 2022Q2

REPORT INFORMATION
  Report Type: Spontaneous
  Country: US (occurrence: None)
  Receive Date: 20220626
  Receipt Date: 20220626
  Transmission Date: 20220721
  Serious: No
  Sender: FDA-Public Use
  Company Number: None

PATIENT
  Age: 60 Year
  Sex: Female
  Weight: 69.75 kg

DRUGS (5)
  1. XIIDRA [Suspect]
     Active Substance: LIFITEGRAST
     Indication: Dry eye
     Dosage: OTHER QUANTITY : 1 DROP(S);?FREQUENCY : TWICE A DAY;?
     Route: 047
  2. THORN MERIVA-SF [Concomitant]
  3. HOMOCYSTEINE SUPREME [Concomitant]
  4. GLUCOSAMINE SULFATE [Concomitant]
  5. VITAL ALLER-C [Concomitant]

REACTIONS (3)
  - Productive cough [None]
  - Dysgeusia [None]
  - Eye discharge [None]

NARRATIVE: CASE EVENT DATE: 20220625
